FAERS Safety Report 6667196-2 (Version None)
Quarter: 2010Q2

REPORT INFORMATION
  Report Type: 
  Country: None (occurrence: None)
  Receive Date: 20100405
  Receipt Date: 20100329
  Transmission Date: 20101027
  Serious: Yes (Hospitalization, Other)
  Sender: FDA-Public Use
  Company Number: US-RB-005696-10

PATIENT
  Sex: Female

DRUGS (2)
  1. SUBOXONE [Suspect]
     Route: 063
     Dates: start: 20100223
  2. SUBOXONE [Suspect]
     Dosage: DOSING VARIES FROM 8-16 MG DAILY
     Route: 064
     Dates: start: 20090522, end: 20100222

REACTIONS (5)
  - DRUG EXPOSURE DURING PREGNANCY [None]
  - DRUG EXPOSURE VIA BREAST MILK [None]
  - SMALL FOR DATES BABY [None]
  - TREMOR [None]
  - VENTRICULAR SEPTAL DEFECT [None]
